FAERS Safety Report 9893837 (Version 1)
Quarter: 2014Q1

REPORT INFORMATION
  Report Type: Spontaneous
  Country: CH (occurrence: CH)
  Receive Date: 20140213
  Receipt Date: 20140213
  Transmission Date: 20141002
  Serious: Yes (Hospitalization)
  Sender: FDA-Public Use
  Company Number: CH-PFIZER INC-2014035238

PATIENT
  Age: 76 Year
  Sex: Female

DRUGS (9)
  1. AROMASIN [Suspect]
     Indication: BREAST CANCER
     Dosage: 25 MG, 1X/DAY
     Route: 048
  2. CIPRALEX [Interacting]
     Dosage: UNK
     Route: 048
     Dates: end: 20140116
  3. PROCORALAN [Interacting]
     Dosage: UNK
     Route: 048
     Dates: end: 20140116
  4. BACTRIM [Interacting]
     Indication: URINARY TRACT INFECTION BACTERIAL
     Dosage: UNK
     Route: 048
     Dates: end: 20140116
  5. BELOC ZOK [Concomitant]
     Dosage: 25 MG, 1X/DAY
     Route: 048
  6. COSAAR PLUS [Concomitant]
     Dosage: 1 DF (50/12.5 MG), 1X/DAY
     Route: 048
  7. ALDACTONE [Concomitant]
     Dosage: 25 MG, 1X/DAY
     Route: 048
  8. PROLIA [Concomitant]
     Dosage: UNK
  9. POTASSIUM [Concomitant]
     Dosage: UNK

REACTIONS (2)
  - Drug interaction [Not Recovered/Not Resolved]
  - Electrocardiogram QT prolonged [Not Recovered/Not Resolved]
